FAERS Safety Report 14069724 (Version 1)
Quarter: 2017Q4

REPORT INFORMATION
  Report Type: Report from Study
  Country: US (occurrence: US)
  Receive Date: 20171010
  Receipt Date: 20171010
  Transmission Date: 20180321
  Serious: Yes (Other)
  Sender: FDA-Public Use
  Company Number: US-JNJFOC-20170804669

PATIENT
  Sex: Male

DRUGS (2)
  1. IMBRUVICA [Suspect]
     Active Substance: IBRUTINIB
     Indication: HAEMATOPOIETIC NEOPLASM
     Route: 048
  2. IMBRUVICA [Suspect]
     Active Substance: IBRUTINIB
     Indication: HAEMATOPOIETIC NEOPLASM
     Route: 048

REACTIONS (5)
  - Arrhythmia [Not Recovered/Not Resolved]
  - Off label use [Unknown]
  - Chest discomfort [Not Recovered/Not Resolved]
  - Rosacea [Not Recovered/Not Resolved]
  - Incorrect dose administered [Unknown]
